FAERS Safety Report 12915920 (Version 3)
Quarter: 2016Q4

REPORT INFORMATION
  Report Type: Spontaneous
  Country: FR (occurrence: FR)
  Receive Date: 20161104
  Receipt Date: 20161214
  Transmission Date: 20170207
  Serious: Yes (Hospitalization)
  Sender: FDA-Public Use
  Company Number: FR-EISAI MEDICAL RESEARCH-EC-2016-021925

PATIENT
  Age: 52 Year
  Sex: Female

DRUGS (2)
  1. HALAVEN [Suspect]
     Active Substance: ERIBULIN MESYLATE
     Indication: BREAST CANCER METASTATIC
     Route: 041
     Dates: start: 20160906, end: 20161028
  2. HERCEPTIN [Suspect]
     Active Substance: TRASTUZUMAB
     Indication: BREAST CANCER METASTATIC
     Route: 042
     Dates: start: 20160906, end: 20161021

REACTIONS (14)
  - Hypocalcaemia [Recovering/Resolving]
  - Vomiting [Unknown]
  - Status epilepticus [Recovered/Resolved]
  - Abnormal behaviour [Recovered/Resolved]
  - Hypokalaemia [Recovering/Resolving]
  - Bone marrow failure [Recovered/Resolved]
  - Hepatic enzyme increased [Unknown]
  - Abdominal pain upper [Unknown]
  - Amnesia [Not Recovered/Not Resolved]
  - Communication disorder [Recovered/Resolved]
  - Coma [Recovered/Resolved]
  - Mucosal inflammation [Unknown]
  - Haemorrhage [Unknown]
  - Pyrexia [Recovered/Resolved]

NARRATIVE: CASE EVENT DATE: 20161029
